FAERS Safety Report 4726576-2 (Version None)
Quarter: 2005Q3

REPORT INFORMATION
  Report Type: 
  Country: None (occurrence: None)
  Receive Date: 20050726
  Receipt Date: 20050713
  Transmission Date: 20060218
  Serious: Yes (Other)
  Sender: FDA-Public Use
  Company Number: 2005104211

PATIENT
  Age: 33 Year

DRUGS (6)
  1. PREDNISONE [Suspect]
     Indication: SJOGREN'S SYNDROME
     Dosage: 6 MG (DAILY)
  2. PREDNISONE [Suspect]
     Indication: SYSTEMIC LUPUS ERYTHEMATOSUS
     Dosage: 6 MG (DAILY)
  3. METHYLPREDNISOLONE [Suspect]
     Indication: HERPES SIMPLEX
     Dosage: 0.8 MG/KG (DAILY)
  4. METHYLPREDNISOLONE [Suspect]
     Indication: PNEUMOCYSTIS JIROVECI PNEUMONIA
     Dosage: 0.8 MG/KG (DAILY)
  5. METHOTREXATE [Suspect]
     Indication: SJOGREN'S SYNDROME
     Dosage: 4 MG (WEEKLY)
  6. METHOTREXATE [Suspect]
     Indication: SYSTEMIC LUPUS ERYTHEMATOSUS
     Dosage: 4 MG (WEEKLY)

REACTIONS (4)
  - BLOOD BETA-D-GLUCAN INCREASED [None]
  - BLOOD LACTATE DEHYDROGENASE INCREASED [None]
  - HERPES SIMPLEX [None]
  - PNEUMOCYSTIS JIROVECI PNEUMONIA [None]
